FAERS Safety Report 8562216-2 (Version None)
Quarter: 2012Q3

REPORT INFORMATION
  Report Type: 
  Country: None (occurrence: None)
  Receive Date: 20120802
  Receipt Date: 20120711
  Transmission Date: 20120928
  Serious: No
  Sender: FDA-Public Use
  Company Number: US-AMGEN-USASP2012042929

PATIENT
  Sex: Male

DRUGS (1)
  1. ENBREL [Suspect]
     Indication: PSORIASIS
     Dosage: UNK
     Dates: start: 20050712, end: 20120416

REACTIONS (10)
  - FUNGAL INFECTION [None]
  - CONTUSION [None]
  - FATIGUE [None]
  - BACK PAIN [None]
  - WHITE BLOOD CELL COUNT DECREASED [None]
  - HAEMORRHAGE [None]
  - TUBERCULOSIS [None]
  - ONYCHOMYCOSIS [None]
  - PLATELET COUNT DECREASED [None]
  - PSORIASIS [None]
